FAERS Safety Report 9701116 (Version 1)
Quarter: 2013Q4

REPORT INFORMATION
  Report Type: Spontaneous
  Country: US (occurrence: None)
  Receive Date: 20131120
  Receipt Date: 20131120
  Transmission Date: 20140711
  Serious: Yes (Other)
  Sender: FDA-Public Use
  Company Number: None

PATIENT
  Age: 72 None
  Sex: Male

DRUGS (1)
  1. XTANDI [Suspect]
     Route: 048
     Dates: start: 20130813, end: 20131112

REACTIONS (2)
  - Neoplasm malignant [None]
  - Disease progression [None]
